FAERS Safety Report 7101647-4 (Version None)
Quarter: 2010Q4

REPORT INFORMATION
  Report Type: 
  Country: None (occurrence: None)
  Receive Date: 20101115
  Receipt Date: 20101103
  Transmission Date: 20110411
  Serious: Yes (Hospitalization)
  Sender: FDA-Public Use
  Company Number: CA-ELI_LILLY_AND_COMPANY-CA201011001423

PATIENT
  Age: 67 Year
  Sex: Female

DRUGS (10)
  1. FORTEO [Suspect]
     Indication: OSTEOPOROSIS
     Dosage: 20 UG, DAILY (1/D)
     Route: 058
     Dates: start: 20090831
  2. INSULIN [Concomitant]
     Dosage: UNK, 2/D
     Route: 058
  3. NPH INSULIN [Concomitant]
     Dosage: UNK, 2/D
     Route: 058
  4. METFORMIN HCL [Concomitant]
  5. PREDNISONE [Concomitant]
  6. WARFARIN [Concomitant]
  7. OMEPRAZOLE [Concomitant]
  8. GABAPENTIN [Concomitant]
  9. SYNTHROID [Concomitant]
  10. ROBAXACET [Concomitant]
     Dosage: UNK, DAILY (1/D)

REACTIONS (1)
  - INFECTION [None]
